FAERS Safety Report 7982412-2 (Version None)
Quarter: 2011Q4

REPORT INFORMATION
  Report Type: 
  Country: None (occurrence: None)
  Receive Date: 20111214
  Receipt Date: 20111214
  Transmission Date: 20120403
  Serious: No
  Sender: FDA-Public Use
  Company Number: None

PATIENT

DRUGS (2)
  1. ZYPREXA [Suspect]
  2. CLOZAPINE [Suspect]

REACTIONS (13)
  - SUICIDE ATTEMPT [None]
  - PAIN [None]
  - YELLOW SKIN [None]
  - DRUG INTERACTION [None]
  - FEELING ABNORMAL [None]
  - ASTHENIA [None]
  - INTENTIONAL SELF-INJURY [None]
  - CRYING [None]
  - DELIRIUM [None]
  - TOXICITY TO VARIOUS AGENTS [None]
  - PALPITATIONS [None]
  - OFF LABEL USE [None]
  - OVERDOSE [None]
